FAERS Safety Report 5583999-X (Version None)
Quarter: 2008Q1

REPORT INFORMATION
  Report Type: 
  Country: None (occurrence: None)
  Receive Date: 20080103
  Receipt Date: 20080103
  Transmission Date: 20080703
  Serious: Yes (Hospitalization)
  Sender: FDA-Public Use
  Company Number: None

PATIENT
  Age: 69 Year
  Sex: Female

DRUGS (2)
  1. ENOXAPARIN SODIUM [Suspect]
     Indication: THROMBOSIS PROPHYLAXIS
     Dosage: 80MG BID SQ
     Route: 058
  2. ASPIRIN [Suspect]
     Indication: DRUG THERAPY
     Dosage: 81MG DAILY PO
     Route: 048

REACTIONS (3)
  - ABDOMINAL WALL HAEMATOMA [None]
  - ANAEMIA [None]
  - CONTUSION [None]
